FAERS Safety Report 5109243-5 (Version None)
Quarter: 2006Q3

REPORT INFORMATION
  Report Type: 
  Country: None (occurrence: None)
  Receive Date: 20060918
  Receipt Date: 20060907
  Transmission Date: 20061208
  Serious: Yes (Other)
  Sender: FDA-Public Use
  Company Number: 163-21880-06090221

PATIENT
  Age: 79 Year
  Sex: Male

DRUGS (2)
  1. REVLIMID [Suspect]
     Indication: MYELODYSPLASTIC SYNDROME
     Dosage: 1 IN 1 D, ORAL
     Route: 048
     Dates: start: 20060301, end: 20060802
  2. BLOOD TRANSFUSION [Concomitant]

REACTIONS (4)
  - ASTHENIA [None]
  - CARDIAC PACEMAKER INSERTION [None]
  - DYSPNOEA [None]
  - GAIT DISTURBANCE [None]
